FAERS Safety Report 7749551-2 (Version None)
Quarter: 2011Q3

REPORT INFORMATION
  Report Type: 
  Country: None (occurrence: None)
  Receive Date: 20110914
  Receipt Date: 20110902
  Transmission Date: 20111222
  Serious: Yes (Hospitalization)
  Sender: FDA-Public Use
  Company Number: DE-ELI_LILLY_AND_COMPANY-DE201109000511

PATIENT
  Age: 55 Year
  Sex: Female

DRUGS (5)
  1. FERROUS SULFATE TAB [Concomitant]
  2. PREDNISOLONE [Concomitant]
     Dosage: 8 MG, UNK
  3. MORPHINE [Concomitant]
  4. FORTEO [Suspect]
     Indication: OSTEOPOROSIS
     Dosage: UNK, QD
     Route: 058
     Dates: start: 20101126, end: 20110801
  5. CORTISONE ACETATE [Concomitant]
     Dosage: 10 MG, UNK

REACTIONS (4)
  - WOUND INFECTION [None]
  - MALAISE [None]
  - BLOOD CREATININE INCREASED [None]
  - RENAL FAILURE ACUTE [None]
